FAERS Safety Report 17386982 (Version 2)
Quarter: 2020Q1

REPORT INFORMATION
  Report Type: Spontaneous
  Country: FR (occurrence: FR)
  Receive Date: 20200206
  Receipt Date: 20200212
  Transmission Date: 20200409
  Serious: Yes (Life-Threatening, Hospitalization)
  Sender: FDA-Public Use
  Company Number: FR-009507513-2002FRA001087

PATIENT
  Age: 39 Month
  Sex: Female
  Weight: 14.32 kg

DRUGS (3)
  1. EMERADE [Suspect]
     Active Substance: EPINEPHRINE BITARTRATE
     Indication: ANAPHYLACTIC SHOCK
     Dosage: 150 MICROGRAM, AUTO-INJECTOR
     Route: 065
     Dates: start: 20200101, end: 202001
  2. VENTOLIN [Suspect]
     Active Substance: ALBUTEROL SULFATE
     Indication: ANAPHYLACTIC SHOCK
     Dosage: INHALATION CHAMBER
  3. AERIUS (DESLORATADINE) [Suspect]
     Active Substance: DESLORATADINE
     Indication: ANAPHYLACTIC SHOCK
     Dosage: UNK
     Route: 048
     Dates: start: 20200101

REACTIONS (6)
  - Wrong technique in product usage process [Unknown]
  - Nasopharyngitis [Not Recovered/Not Resolved]
  - Injection site pain [Unknown]
  - Device malfunction [Unknown]
  - Injection site bruising [Recovered/Resolved]
  - Hospitalisation [Unknown]

NARRATIVE: CASE EVENT DATE: 20200101
